FAERS Safety Report 9812391 (Version 1)
Quarter: 2014Q1

REPORT INFORMATION
  Report Type: Spontaneous
  Country: GB (occurrence: GB)
  Receive Date: 20140113
  Receipt Date: 20140113
  Transmission Date: 20141002
  Serious: Yes (Disabling)
  Sender: FDA-Public Use
  Company Number: GB-BIOGENIDEC-2014BI002224

PATIENT
  Age: 49 Year
  Sex: 0

DRUGS (1)
  1. TYSABRI [Suspect]
     Indication: PRODUCT USED FOR UNKNOWN INDICATION
     Route: 042

REACTIONS (3)
  - Eczema [Unknown]
  - Lichen planus [Unknown]
  - Systemic lupus erythematosus [Unknown]
